FAERS Safety Report 17281119 (Version 1)
Quarter: 2020Q1

REPORT INFORMATION
  Report Type: Spontaneous
  Country: US (occurrence: US)
  Receive Date: 20200117
  Receipt Date: 20200117
  Transmission Date: 20200409
  Serious: No
  Sender: FDA-Public Use
  Company Number: US-AUROBINDO-AUR-APL-2019-026002

PATIENT

DRUGS (1)
  1. DEXTROAMPHET SACCHARAT, AMPHET ASPARTATE, DEXTROAMPHET SULFATE AND AMPHET SULFAT [Suspect]
     Active Substance: AMPHETAMINE ASPARTATE\AMPHETAMINE SULFATE\DEXTROAMPHETAMINE SACCHARATE\DEXTROAMPHETAMINE SULFATE
     Indication: PRODUCT USED FOR UNKNOWN INDICATION
     Dosage: UNK
     Route: 065

REACTIONS (11)
  - Headache [Unknown]
  - Diplopia [Unknown]
  - Irritability [Unknown]
  - Lethargy [Unknown]
  - Hypoaesthesia [Unknown]
  - Chest pain [Unknown]
  - Throat tightness [Unknown]
  - Paraesthesia [Unknown]
  - Dyspnoea [Unknown]
  - Vision blurred [Unknown]
  - Pruritus [Unknown]
